FAERS Safety Report 15773069 (Version 5)
Quarter: 2019Q4

REPORT INFORMATION
  Report Type: Report from Study
  Country: US (occurrence: US)
  Receive Date: 20181228
  Receipt Date: 20191114
  Transmission Date: 20200122
  Serious: Yes (Hospitalization)
  Sender: FDA-Public Use
  Company Number: US-ACTELION-A-NJ2018-171659

PATIENT
  Age: 60 Year
  Sex: Female

DRUGS (16)
  1. CARVEDILOL. [Suspect]
     Active Substance: CARVEDILOL
     Indication: PRODUCT USED FOR UNKNOWN INDICATION
     Route: 065
  2. KLOR-CON [Concomitant]
     Active Substance: POTASSIUM CHLORIDE
     Dosage: 20 MEQ, BID
     Dates: start: 2013
  3. ALBUTEROL. [Concomitant]
     Active Substance: ALBUTEROL
     Dosage: 0.5MG/3MG PER 3 ML SOL, BID
     Dates: start: 201801
  4. METOLAZONE. [Concomitant]
     Active Substance: METOLAZONE
     Dosage: 0.25 MG, ONCE A WEEK, PRN
     Dates: start: 2016
  5. SPIRIVA [Suspect]
     Active Substance: TIOTROPIUM BROMIDE MONOHYDRATE
     Indication: PRODUCT USED FOR UNKNOWN INDICATION
     Dosage: 2.5 MG, 2 HOTS QAM
     Route: 065
     Dates: start: 201801
  6. ORENITRAM [Concomitant]
     Active Substance: TREPROSTINIL
     Indication: PULMONARY ARTERIAL HYPERTENSION
     Dosage: UNK
     Dates: start: 20190309
  7. BUDESONIDE. [Concomitant]
     Active Substance: BUDESONIDE
     Dosage: 1 MG, BID
     Dates: start: 201801
  8. DILTIAZEM. [Concomitant]
     Active Substance: DILTIAZEM
     Dosage: 60 MG, BID
     Dates: start: 2013
  9. SPIRONOLACTONE. [Concomitant]
     Active Substance: SPIRONOLACTONE
     Dosage: 50 MG, QD
     Dates: start: 2013
  10. OPSUMIT [Suspect]
     Active Substance: MACITENTAN
     Indication: PULMONARY ARTERIAL HYPERTENSION
     Dosage: 10 MG, QD
     Route: 048
     Dates: start: 20180417
  11. BUTAMINE [Concomitant]
     Active Substance: DOBUTAMINE HYDROCHLORIDE
     Dosage: 1 MG, BID
     Dates: start: 201801
  12. SYMBICORT [Concomitant]
     Active Substance: BUDESONIDE\FORMOTEROL FUMARATE DIHYDRATE
     Dosage: 4.5 MG, BID
     Dates: start: 201801
  13. VELETRI [Concomitant]
     Active Substance: EPOPROSTENOL
     Indication: PULMONARY ARTERIAL HYPERTENSION
     Route: 042
  14. MAGNESIUM [Concomitant]
     Active Substance: MAGNESIUM
     Dosage: 250 MG, QD
     Dates: start: 2013
  15. OPSUMIT [Suspect]
     Active Substance: MACITENTAN
     Dosage: 10 MG, QD
     Route: 048
  16. ASPIRIN. [Concomitant]
     Active Substance: ASPIRIN

REACTIONS (19)
  - Fluid retention [Unknown]
  - Weight increased [Unknown]
  - Blood pressure decreased [Recovered/Resolved]
  - Pulmonary arterial pressure increased [Unknown]
  - Alopecia [Unknown]
  - Muscle spasms [Unknown]
  - Increased appetite [Unknown]
  - Dyspnoea [Unknown]
  - Anaemia [Unknown]
  - Heart rate decreased [Recovered/Resolved]
  - Condition aggravated [Unknown]
  - Cardiac failure congestive [Unknown]
  - Fatigue [Recovered/Resolved]
  - Oxygen saturation decreased [Unknown]
  - Pulmonary arterial hypertension [Unknown]
  - Lung disorder [Unknown]
  - Renal disorder [Unknown]
  - Oedema [Unknown]
  - Cardiomegaly [Unknown]

NARRATIVE: CASE EVENT DATE: 20180418
